FAERS Safety Report 8518373-7 (Version None)
Quarter: 2012Q2

REPORT INFORMATION
  Report Type: 
  Country: None (occurrence: None)
  Receive Date: 20120406
  Receipt Date: 20090421
  Transmission Date: 20120825
  Serious: Yes (Other)
  Sender: FDA-Public Use
  Company Number: PHEH2009US04004

PATIENT
  Sex: Female

DRUGS (8)
  1. NEURONTONIN (GABAPENTIN) [Concomitant]
  2. TOPROL-XL [Concomitant]
  3. HUMULIN (INSULIN HUMAN, INSULIN ISOPHANE, HUMAN BIOSYNTHETIC) [Concomitant]
  4. TASIGNA [Suspect]
     Indication: CHRONIC MYELOID LEUKAEMIA
     Dosage: 400 MG, BID, ORAL
     Route: 048
  5. LEVAQUIN [Concomitant]
  6. FLOMAX (TAMUSOLIN HYDROCHLORIDE) [Concomitant]
  7. GLYSET (MIGLITOL) [Concomitant]
  8. AMBIEN [Concomitant]

REACTIONS (1)
  - ELECTROCARDIOGRAM QT PROLONGED [None]
